FAERS Safety Report 5771843-7 (Version None)
Quarter: 2008Q2

REPORT INFORMATION
  Report Type: 
  Country: None (occurrence: None)
  Receive Date: 20080613
  Receipt Date: 20080610
  Transmission Date: 20081010
  Serious: Yes (Death)
  Sender: FDA-Public Use
  Company Number: A0732938A

PATIENT
  Age: 64 Year
  Sex: Male
  Weight: 55 kg

DRUGS (3)
  1. SERETIDE [Suspect]
     Indication: LUNG DISORDER
     Route: 055
     Dates: start: 20030101, end: 20080219
  2. ENALAPRIL MALEATE [Concomitant]
     Dates: start: 20070601, end: 20080219
  3. BAMIFIX [Concomitant]
     Dates: start: 20050601, end: 20080219

REACTIONS (1)
  - DEATH [None]
